FAERS Safety Report 9397633 (Version 1)
Quarter: 2013Q3

REPORT INFORMATION
  Report Type: Spontaneous
  Country: FR (occurrence: FR)
  Receive Date: 20130712
  Receipt Date: 20130712
  Transmission Date: 20140515
  Serious: Yes (Hospitalization)
  Sender: FDA-Public Use
  Company Number: FR-MERCK-1307FRA003294

PATIENT
  Age: 35 Year
  Sex: Male
  Weight: 62 kg

DRUGS (3)
  1. CANCIDAS [Suspect]
     Indication: SPONDYLITIS
     Dosage: 800 MG, QD
     Route: 048
     Dates: start: 2005
  2. VFEND [Suspect]
     Indication: SPONDYLITIS
     Dosage: 267 MG, TID
     Route: 048
  3. EFUDIX [Suspect]
     Indication: HYPERKERATOSIS
     Dosage: 1 DF, 5 X PER WEEK
     Route: 003
     Dates: start: 2011

REACTIONS (1)
  - Salivary gland neoplasm [Not Recovered/Not Resolved]
